FAERS Safety Report 11090411 (Version 1)
Quarter: 2015Q2

REPORT INFORMATION
  Report Type: Spontaneous
  Country: US (occurrence: None)
  Receive Date: 20150504
  Receipt Date: 20150504
  Transmission Date: 20150821
  Serious: Yes (Other)
  Sender: FDA-Public Use
  Company Number: None

PATIENT
  Age: 63 Year
  Sex: Female
  Weight: 114.31 kg

DRUGS (2)
  1. AZITHROMYCIN DOSE PACK [Suspect]
     Active Substance: AZITHROMYCIN DIHYDRATE
     Indication: HYPERSENSITIVITY
     Dosage: 5 PILLS
     Route: 048
     Dates: start: 20150424, end: 20150428
  2. AZITHROMYCIN DOSE PACK [Suspect]
     Active Substance: AZITHROMYCIN DIHYDRATE
     Indication: EUSTACHIAN TUBE DISORDER
     Dosage: 5 PILLS
     Route: 048
     Dates: start: 20150424, end: 20150428

REACTIONS (4)
  - Throat irritation [None]
  - Pain [None]
  - Product quality issue [None]
  - Product substitution issue [None]

NARRATIVE: CASE EVENT DATE: 20150501
